FAERS Safety Report 26038460 (Version 1)
Quarter: 2025Q4

REPORT INFORMATION
  Report Type: Spontaneous
  Country: EU (occurrence: EU)
  Receive Date: 20251113
  Receipt Date: 20251113
  Transmission Date: 20260117
  Serious: Yes (Other)
  Sender: JOHNSON AND JOHNSON
  Company Number: EU-JNJFOC-20251153519

PATIENT
  Age: 14 Year
  Sex: Female

DRUGS (1)
  1. DARATUMUMAB [Suspect]
     Active Substance: DARATUMUMAB
     Indication: Product used for unknown indication
     Route: 065

REACTIONS (4)
  - Polyomavirus viraemia [Unknown]
  - Cytomegalovirus infection reactivation [Unknown]
  - Herpes zoster [Unknown]
  - Off label use [Unknown]
